FAERS Safety Report 14582200 (Version 1)
Quarter: 2018Q1

REPORT INFORMATION
  Report Type: Spontaneous
  Country: US (occurrence: US)
  Receive Date: 20180228
  Receipt Date: 20180228
  Transmission Date: 20180509
  Serious: No
  Sender: FDA-Public Use
  Company Number: US-009507513-1802USA011927

PATIENT
  Age: 17 Year
  Sex: Female

DRUGS (2)
  1. NEXPLANON [Suspect]
     Active Substance: ETONOGESTREL
     Dosage: 1 IMPLANT SUBDERMALLY EVERY 3
     Route: 059
     Dates: start: 20180219
  2. NEXPLANON [Suspect]
     Active Substance: ETONOGESTREL
     Dosage: 1 IMPLANT SUBDERMALLY EVERY 3
     Route: 059
     Dates: start: 20180219

REACTIONS (4)
  - Complication associated with device [Not Recovered/Not Resolved]
  - Overdose [Unknown]
  - No adverse event [Unknown]
  - Product quality issue [Unknown]
